FAERS Safety Report 20362608 (Version 1)
Quarter: 2022Q1

REPORT INFORMATION
  Report Type: Spontaneous
  Country: US (occurrence: None)
  Receive Date: 20220120
  Receipt Date: 20220120
  Transmission Date: 20220424
  Serious: No
  Sender: FDA-Public Use
  Company Number: None

PATIENT
  Sex: Female

DRUGS (1)
  1. TRESIBA [Suspect]
     Active Substance: INSULIN DEGLUDEC

REACTIONS (5)
  - Product container seal issue [None]
  - Product packaging quantity issue [None]
  - Economic problem [None]
  - Physical product label issue [None]
  - Victim of crime [None]

NARRATIVE: CASE EVENT DATE: 20220120
